FAERS Safety Report 12239210 (Version 1)
Quarter: 2016Q2

REPORT INFORMATION
  Report Type: Spontaneous
  Country: US (occurrence: US)
  Receive Date: 20160405
  Receipt Date: 20160405
  Transmission Date: 20160815
  Serious: No
  Sender: FDA-Public Use
  Company Number: US-WARNER CHILCOTT, LLC-1050225

PATIENT
  Age: 33 Year
  Sex: Female

DRUGS (2)
  1. STRATTERA [Concomitant]
     Active Substance: ATOMOXETINE HYDROCHLORIDE
  2. FEMRING [Suspect]
     Active Substance: ESTRADIOL ACETATE
     Indication: HORMONE REPLACEMENT THERAPY
     Route: 067
     Dates: start: 201506

REACTIONS (5)
  - Drug prescribing error [None]
  - Wrong technique in product usage process [None]
  - Drug ineffective [Not Recovered/Not Resolved]
  - Device expulsion [Unknown]
  - Intentional medical device removal by patient [None]
